FAERS Safety Report 20654161 (Version 3)
Quarter: 2022Q3

REPORT INFORMATION
  Report Type: Report from Study
  Country: FR (occurrence: FR)
  Receive Date: 20220330
  Receipt Date: 20220921
  Transmission Date: 20221026
  Serious: Yes (Hospitalization)
  Sender: FDA-Public Use
  Company Number: FR-EORTC-1745-210-1

PATIENT
  Age: 71 Year
  Sex: Female
  Weight: 81 kg

DRUGS (2)
  1. PALBOCICLIB [Suspect]
     Active Substance: PALBOCICLIB
     Indication: Hormone receptor positive breast cancer
     Dosage: 125 MG, 1X/DAY (SCHEDULE: ONCE A DAY ORALLY FOR 21 DAYS, FOLLOWED BY 7 DAYS OFF TREATMENT)
     Route: 048
     Dates: start: 20210723, end: 20220211
  2. LETROZOLE [Concomitant]
     Active Substance: LETROZOLE
     Indication: Hormone receptor positive breast cancer
     Dosage: 2.5 MG, 1X/DAY
     Route: 048
     Dates: start: 20210723

REACTIONS (1)
  - Pulmonary embolism [Recovered/Resolved]

NARRATIVE: CASE EVENT DATE: 20220211
